FAERS Safety Report 21151386 (Version 4)
Quarter: 2022Q4

REPORT INFORMATION
  Report Type: Report from Study
  Country: US (occurrence: US)
  Receive Date: 20220730
  Receipt Date: 20221004
  Transmission Date: 20230113
  Serious: Yes (Hospitalization, Other)
  Sender: FDA-Public Use
  Company Number: US-ABBVIE-22K-163-4487162-00

PATIENT
  Sex: Female

DRUGS (2)
  1. RINVOQ [Suspect]
     Active Substance: UPADACITINIB
     Indication: Rheumatoid arthritis
     Route: 048
     Dates: start: 20220405, end: 202207
  2. RINVOQ [Suspect]
     Active Substance: UPADACITINIB
     Indication: Rheumatoid arthritis
     Route: 048
     Dates: start: 2022, end: 2022

REACTIONS (9)
  - Surgery [Unknown]
  - Infection [Unknown]
  - Pain [Unknown]
  - Spinal cord infection [Not Recovered/Not Resolved]
  - Arthralgia [Unknown]
  - Musculoskeletal stiffness [Unknown]
  - Post procedural complication [Unknown]
  - Bacterial infection [Unknown]
  - Fatigue [Unknown]

NARRATIVE: CASE EVENT DATE: 20220101
